FAERS Safety Report 7018314-8 (Version None)
Quarter: 2010Q3

REPORT INFORMATION
  Report Type: 
  Country: None (occurrence: None)
  Receive Date: 20100923
  Receipt Date: 20100914
  Transmission Date: 20110219
  Serious: Yes (Hospitalization)
  Sender: FDA-Public Use
  Company Number: 2010JP002816

PATIENT
  Age: 5 Year
  Sex: Female
  Weight: 19 kg

DRUGS (11)
  1. PROGRAF [Suspect]
     Indication: HEART TRANSPLANT
     Dosage: 4 MG, /D, ORAL
     Route: 048
  2. FUNGIZONE [Suspect]
     Dosage: 25 MG, QID, ORAL
     Route: 048
  3. ROCEPHIN [Suspect]
     Dosage: IV NOS
     Route: 042
     Dates: start: 20100430
  4. CELLCEPT [Concomitant]
  5. LASIX [Concomitant]
  6. LANSOPRAZOLE [Concomitant]
  7. DIFLUCAN [Concomitant]
  8. VALIXA (VALGANCICLOVIR HYDROCHLORIDE) [Concomitant]
  9. MAGNESIUM OXIDE (MAGNESIUM OXIDE) [Concomitant]
  10. TEGRETOL [Concomitant]
  11. LIORESAL [Concomitant]

REACTIONS (2)
  - CHOLELITHIASIS [None]
  - PNEUMONIA ASPIRATION [None]
